FAERS Safety Report 5345317-1 (Version None)
Quarter: 2007Q2

REPORT INFORMATION
  Report Type: 
  Country: None (occurrence: None)
  Receive Date: 20070601
  Receipt Date: 20070601
  Transmission Date: 20071010
  Serious: Yes (Other)
  Sender: FDA-Public Use
  Company Number: None

PATIENT
  Sex: Male

DRUGS (2)
  1. ERYTHROMYCIN TOPICAL GEL 2% [Suspect]
     Dosage: TOPICAL
     Route: 061
     Dates: start: 20070206
  2. METRONIDAZOLE TOPICAL GEL 0.75% [Suspect]
     Dosage: TOPICAL
     Route: 061
     Dates: start: 20070206

REACTIONS (1)
  - DRUG INEFFECTIVE [None]
